FAERS Safety Report 11778612 (Version 1)
Quarter: 2015Q4

REPORT INFORMATION
  Report Type: Spontaneous
  Country: US (occurrence: US)
  Receive Date: 20151125
  Receipt Date: 20151125
  Transmission Date: 20160304
  Serious: No
  Sender: FDA-Public Use
  Company Number: US-HORIZON-PEN-0226-2015

PATIENT
  Age: 59 Year
  Sex: Female

DRUGS (1)
  1. PENNSAID [Suspect]
     Active Substance: DICLOFENAC SODIUM
     Indication: OSTEOARTHRITIS
     Dosage: ONE PUMP TO EACH KNEE ONCE DAILY

REACTIONS (3)
  - Pain [Unknown]
  - Drug dose omission [Unknown]
  - Off label use [Unknown]
